FAERS Safety Report 24211156 (Version 1)
Quarter: 2024Q3

REPORT INFORMATION
  Report Type: Spontaneous
  Country: GB (occurrence: None)
  Receive Date: 20240814
  Receipt Date: 20240814
  Transmission Date: 20241016
  Serious: Yes (Other)
  Sender: ASTRAZENECA
  Company Number: 2024A178354

PATIENT
  Age: 50 Year
  Sex: Male
  Weight: 100 kg

DRUGS (10)
  1. TEZEPELUMAB [Suspect]
     Active Substance: TEZEPELUMAB
     Indication: Asthma
     Dosage: 210MG EVERY 4 WEEKS
     Dates: end: 20240715
  2. AZITHROMYCIN [Concomitant]
     Active Substance: AZITHROMYCIN
  3. AYRTON SAUNDERS BECLOMETASONE [Concomitant]
  4. DESLORATADINE [Concomitant]
     Active Substance: DESLORATADINE
  5. FLUTICASONE FUROATE\UMECLIDINIUM BROMIDE\VILANTEROL TRIFENATATE [Concomitant]
     Active Substance: FLUTICASONE FUROATE\UMECLIDINIUM BROMIDE\VILANTEROL TRIFENATATE
  6. MONTELUKAST [Concomitant]
     Active Substance: MONTELUKAST SODIUM
  7. ALBUTEROL [Concomitant]
     Active Substance: ALBUTEROL
  8. TIOTROPIUM BROMIDE [Concomitant]
     Active Substance: TIOTROPIUM BROMIDE
  9. FLUTICASONE AND UMECLIDINIUM AND VILANTEROL [Concomitant]
  10. FLUTICASONE AND UMECLIDINIUM AND VILANTEROL [Concomitant]

REACTIONS (2)
  - Tendonitis [Not Recovered/Not Resolved]
  - Oedema peripheral [Unknown]

NARRATIVE: CASE EVENT DATE: 20240226
